FAERS Safety Report 8605911-9 (Version None)
Quarter: 2012Q3

REPORT INFORMATION
  Report Type: 
  Country: None (occurrence: None)
  Receive Date: 20120820
  Receipt Date: 20120810
  Transmission Date: 20120928
  Serious: Yes (Hospitalization)
  Sender: FDA-Public Use
  Company Number: GB-GLAXOSMITHKLINE-B0823484A

PATIENT
  Sex: Male

DRUGS (10)
  1. OFATUMUMAB [Suspect]
     Indication: RICHTER'S SYNDROME
     Route: 042
     Dates: start: 20120730
  2. CYCLOPHOSPHAMIDE [Suspect]
     Indication: RICHTER'S SYNDROME
     Dosage: 1700MG PER DAY
     Route: 042
     Dates: start: 20120727, end: 20120727
  3. VORICONAZOLE [Concomitant]
     Indication: ANTIFUNGAL PROPHYLAXIS
     Dosage: 200MG TWICE PER DAY
     Route: 048
  4. VINCRISTINE [Suspect]
     Indication: RICHTER'S SYNDROME
     Dosage: 2MG PER DAY
     Route: 042
     Dates: start: 20120727, end: 20120727
  5. RANITIDINE [Concomitant]
     Dosage: 150MG TWICE PER DAY
     Route: 048
     Dates: start: 20120701
  6. PREDNISOLONE [Concomitant]
     Route: 048
  7. DOXORUBICIN HYDROCHLORIDE [Suspect]
     Indication: RICHTER'S SYNDROME
     Dosage: 120MG PER DAY
     Route: 042
     Dates: start: 20120727, end: 20120727
  8. SERTRALINE HYDROCHLORIDE [Concomitant]
     Indication: DEPRESSION
     Dosage: 200MG PER DAY
     Route: 048
  9. PREDNISOLONE [Suspect]
     Indication: RICHTER'S SYNDROME
     Dosage: 95MG PER DAY
     Route: 048
     Dates: start: 20120727, end: 20120731
  10. ACYCLOVIR [Concomitant]
     Indication: ANTIVIRAL PROPHYLAXIS
     Dosage: 200MG THREE TIMES PER DAY
     Route: 048
     Dates: start: 20120701

REACTIONS (1)
  - NEUTROPENIC SEPSIS [None]
